FAERS Safety Report 21403444 (Version 1)
Quarter: 2022Q4

REPORT INFORMATION
  Report Type: Spontaneous
  Country: US (occurrence: None)
  Receive Date: 20221001
  Receipt Date: 20221001
  Transmission Date: 20230113
  Serious: Yes (unspecified)
  Sender: FDA-Public Use
  Company Number: None

PATIENT
  Age: 74 Year
  Sex: Male
  Weight: 91.8 kg

DRUGS (1)
  1. PRALUENT [Suspect]
     Active Substance: ALIROCUMAB

REACTIONS (4)
  - Muscular weakness [None]
  - Gait disturbance [None]
  - Idiopathic inflammatory myopathy [None]
  - Therapy cessation [None]

NARRATIVE: CASE EVENT DATE: 20220619
